FAERS Safety Report 6821292-5 (Version None)
Quarter: 2010Q3

REPORT INFORMATION
  Report Type: 
  Country: None (occurrence: None)
  Receive Date: 20100707
  Receipt Date: 20080728
  Transmission Date: 20110219
  Serious: No
  Sender: FDA-Public Use
  Company Number: US-PFIZER INC-2008048950

PATIENT
  Sex: Female
  Weight: 63.6 kg

DRUGS (3)
  1. ZOLOFT [Suspect]
     Indication: PANIC DISORDER
     Route: 048
     Dates: start: 20000101
  2. ZOLOFT [Suspect]
     Indication: DEPRESSION
  3. MULTI-VITAMINS [Concomitant]
     Route: 048

REACTIONS (1)
  - TOOTHACHE [None]
